FAERS Safety Report 7025533-3 (Version None)
Quarter: 2010Q4

REPORT INFORMATION
  Report Type: 
  Country: None (occurrence: None)
  Receive Date: 20101003
  Receipt Date: 20100922
  Transmission Date: 20110411
  Serious: Yes (Other)
  Sender: FDA-Public Use
  Company Number: PHHY2010CA53757

PATIENT
  Sex: Female

DRUGS (2)
  1. ALISKIREN ALI+ [Suspect]
     Dosage: UNK
     Dates: start: 20100226
  2. MICARDIS HCT [Concomitant]
     Dosage: UNK

REACTIONS (1)
  - SYNCOPE [None]
